FAERS Safety Report 18600128 (Version 1)
Quarter: 2020Q4

REPORT INFORMATION
  Report Type: Spontaneous
  Country: GB (occurrence: GB)
  Receive Date: 20201210
  Receipt Date: 20201210
  Transmission Date: 20210114
  Serious: Yes (Hospitalization)
  Sender: FDA-Public Use
  Company Number: GB-MYLANLABS-2020M1099704

PATIENT
  Age: 41 Year
  Sex: Female

DRUGS (2)
  1. UTOVLAN [Suspect]
     Active Substance: NORETHINDRONE
     Indication: MENORRHAGIA
     Dosage: 5 MILLIGRAM
     Route: 048
     Dates: end: 20201017
  2. TRANEXAMIC ACID. [Suspect]
     Active Substance: TRANEXAMIC ACID
     Indication: MENORRHAGIA
     Dosage: 500 MILLIGRAM
     Route: 048
     Dates: end: 20201017

REACTIONS (2)
  - Dyspnoea [Unknown]
  - Pulmonary embolism [Recovering/Resolving]

NARRATIVE: CASE EVENT DATE: 20201017
